FAERS Safety Report 24702841 (Version 1)
Quarter: 2024Q4

REPORT INFORMATION
  Report Type: Spontaneous
  Country: US (occurrence: None)
  Receive Date: 20241205
  Receipt Date: 20241205
  Transmission Date: 20250114
  Serious: Yes (Hospitalization)
  Sender: Public
  Company Number: None

PATIENT
  Age: 87 Year
  Sex: Male

DRUGS (1)
  1. NUPLAZID [Suspect]
     Active Substance: PIMAVANSERIN TARTRATE
     Indication: Parkinson^s disease psychosis
     Dosage: FREQUENCY : DAILY;?
     Route: 048
     Dates: start: 20241105, end: 20241126

REACTIONS (2)
  - Pneumonia [None]
  - COVID-19 [None]

NARRATIVE: CASE EVENT DATE: 20241112
